FAERS Safety Report 9865169 (Version 1)
Quarter: 2014Q1

REPORT INFORMATION
  Report Type: Spontaneous
  Country: US (occurrence: US)
  Receive Date: 20140203
  Receipt Date: 20140203
  Transmission Date: 20141002
  Serious: No
  Sender: FDA-Public Use
  Company Number: US-ALLERGAN-1303313US

PATIENT
  Age: 51 Year
  Sex: Female

DRUGS (5)
  1. RESTASIS [Suspect]
     Indication: DRY EYE
     Dosage: 2 GTT, BID
     Route: 047
     Dates: start: 20130220
  2. REFRESH OPTIVE [Concomitant]
     Indication: DRY EYE
  3. THERA TEARS [Concomitant]
     Indication: DRY EYE
     Dosage: UNK
     Route: 047
  4. REFRESH PLUS [Concomitant]
     Indication: DRY EYE
     Dosage: UNK
     Route: 047
  5. VITAMINS [Concomitant]
     Indication: SUPPLEMENTATION THERAPY
     Dosage: UNK
     Route: 048

REACTIONS (7)
  - Application site erythema [Recovering/Resolving]
  - Eyelid irritation [Unknown]
  - Asthenopia [Unknown]
  - Eye pain [Unknown]
  - Erythema of eyelid [Unknown]
  - Eye irritation [Unknown]
  - Scleral hyperaemia [Recovering/Resolving]
